FAERS Safety Report 12080022 (Version 1)
Quarter: 2016Q1

REPORT INFORMATION
  Report Type: Spontaneous
  Country: US (occurrence: US)
  Receive Date: 20160216
  Receipt Date: 20160216
  Transmission Date: 20160526
  Serious: No
  Sender: FDA-Public Use
  Company Number: US-BAYER-2016-029428

PATIENT
  Age: 3 Year
  Sex: Male
  Weight: 16.78 kg

DRUGS (2)
  1. CHILDREN CLARITIN ALLERGY [Suspect]
     Active Substance: LORATADINE
     Dosage: 1 TEASPOON, QD
     Route: 048
     Dates: start: 20160208
  2. CHILDREN CLARITIN ALLERGY [Suspect]
     Active Substance: LORATADINE
     Dosage: 3 TEASPOON, QD
     Route: 048
     Dates: start: 20160212, end: 20160212

REACTIONS (2)
  - Product use issue [None]
  - Extra dose administered [None]

NARRATIVE: CASE EVENT DATE: 20160208
